FAERS Safety Report 11163079 (Version 2)
Quarter: 2015Q3

REPORT INFORMATION
  Report Type: Report from Study
  Country: US (occurrence: None)
  Receive Date: 20150603
  Receipt Date: 20150720
  Transmission Date: 20151125
  Serious: Yes (Hospitalization)
  Sender: FDA-Public Use
  Company Number: US-2015CRT000440

PATIENT
  Age: 51 Year
  Sex: Female
  Weight: 176.4 kg

DRUGS (21)
  1. LYRICA [Concomitant]
     Active Substance: PREGABALIN
  2. VITAMIN D /00107901/ (ERGOCALCIFEROL) [Concomitant]
  3. MICARDIS [Concomitant]
     Active Substance: TELMISARTAN
  4. LEVOTHYROXINE. [Concomitant]
     Active Substance: LEVOTHYROXINE
  5. SINGULAIR [Concomitant]
     Active Substance: MONTELUKAST SODIUM
  6. CRESTOR [Concomitant]
     Active Substance: ROSUVASTATIN CALCIUM
  7. NORCO (HYDROCODONE BITARTRATE, PARACETAMOL) [Concomitant]
  8. MS-CONTIN (MORPHINE SULFATE) [Concomitant]
  9. VITAMIN E /00110501/ (TOCOPHEROL) [Concomitant]
  10. KORLYM [Suspect]
     Active Substance: MIFEPRISTONE
     Indication: PITUITARY-DEPENDENT CUSHING^S SYNDROME
     Dosage: 1 DF, DAILY, ORAL
     Route: 048
     Dates: start: 20150203
  11. CALCIUM [Concomitant]
     Active Substance: CALCIUM
  12. CABERGOLINE. [Concomitant]
     Active Substance: CABERGOLINE
  13. ASPIRIN (ACETYLSALICYLIC ACID) [Concomitant]
     Active Substance: ASPIRIN
  14. INSULIN [Concomitant]
     Active Substance: INSULIN NOS
  15. PAXIL /00830802/ (PAROXETINE HYDROCHLORIDE) [Concomitant]
  16. GLYCERIN /00200601/ (GLYCEROL) [Concomitant]
  17. GLIMEPIRIDE. [Concomitant]
     Active Substance: GLIMEPIRIDE
  18. PEPCID [Concomitant]
     Active Substance: FAMOTIDINE
  19. CARDIZEM [Concomitant]
     Active Substance: DILTIAZEM HYDROCHLORIDE
  20. LASIX [Concomitant]
     Active Substance: FUROSEMIDE
  21. ALBUTEROL /00139501/ (SALBUTAMOL) [Concomitant]
     Active Substance: ALBUTEROL

REACTIONS (4)
  - Pneumothorax [None]
  - Feeling jittery [None]
  - Fatigue [None]
  - Abdominal distension [None]

NARRATIVE: CASE EVENT DATE: 201505
